FAERS Safety Report 8046282-9 (Version None)
Quarter: 2012Q1

REPORT INFORMATION
  Report Type: 
  Country: None (occurrence: None)
  Receive Date: 20120113
  Receipt Date: 20120105
  Transmission Date: 20120608
  Serious: Yes (Other)
  Sender: FDA-Public Use
  Company Number: PHHY2012NG001725

PATIENT
  Sex: Female
  Weight: 1.45 kg

DRUGS (3)
  1. MAGNESIUM SULFATE [Suspect]
     Route: 064
  2. FUROSEMIDE [Suspect]
     Route: 064
  3. HYDRALAZINE HCL [Suspect]
     Route: 064

REACTIONS (4)
  - LOW BIRTH WEIGHT BABY [None]
  - TACHYCARDIA FOETAL [None]
  - PREMATURE BABY [None]
  - FOETAL EXPOSURE DURING PREGNANCY [None]
